FAERS Safety Report 20354724 (Version 9)
Quarter: 2022Q1

REPORT INFORMATION
  Report Type: Spontaneous
  Country: US (occurrence: US)
  Receive Date: 20220120
  Receipt Date: 20220316
  Transmission Date: 20220423
  Serious: No
  Sender: FDA-Public Use
  Company Number: US-UNITED THERAPEUTICS-UNT-2022-000285

PATIENT
  Sex: Female
  Weight: 52.608 kg

DRUGS (7)
  1. REMODULIN [Suspect]
     Active Substance: TREPROSTINIL
     Indication: Pulmonary arterial hypertension
     Dosage: UNK UNK, CONTINUING
     Route: 058
     Dates: start: 20210505
  2. REMODULIN [Suspect]
     Active Substance: TREPROSTINIL
     Dosage: 0.090 ?G/KG (PREFILLED WITH 3ML/CASSETTE; PUMP RATE 34 MCL/HOUR), CONTINUING
     Route: 058
  3. REMODULIN [Suspect]
     Active Substance: TREPROSTINIL
     Dosage: UNK UNK, CONTINUING
     Route: 058
  4. ADEMPAS [Suspect]
     Active Substance: RIOCIGUAT
     Indication: Product used for unknown indication
     Dosage: UNK
     Route: 065
  5. WARFARIN SODIUM [Concomitant]
     Active Substance: WARFARIN SODIUM
     Indication: Product used for unknown indication
     Dosage: UNK
     Route: 065
  6. ALYQ [Concomitant]
     Active Substance: TADALAFIL
     Indication: Product used for unknown indication
     Dosage: UNK
     Route: 065
  7. OPSUMIT [Concomitant]
     Active Substance: MACITENTAN
     Indication: Product used for unknown indication
     Dosage: UNK
     Route: 065

REACTIONS (20)
  - Dizziness [Recovered/Resolved]
  - Headache [Unknown]
  - Eye pain [Unknown]
  - Weight decreased [Not Recovered/Not Resolved]
  - Diarrhoea [Not Recovered/Not Resolved]
  - Irritable bowel syndrome [Unknown]
  - Device power source issue [Unknown]
  - Device leakage [Unknown]
  - Device infusion issue [Recovered/Resolved]
  - Product quality issue [Recovered/Resolved]
  - Device infusion issue [Unknown]
  - Device failure [Unknown]
  - Infusion site haemorrhage [Unknown]
  - Device leakage [Unknown]
  - Device failure [Unknown]
  - Device wireless communication issue [Recovered/Resolved]
  - Device failure [Recovered/Resolved]
  - Device infusion issue [Recovered/Resolved]
  - Infusion site erythema [Unknown]
  - Infusion site vesicles [Unknown]

NARRATIVE: CASE EVENT DATE: 20210101
